FAERS Safety Report 24107104 (Version 1)
Quarter: 2024Q3

REPORT INFORMATION
  Report Type: Spontaneous
  Country: US (occurrence: US)
  Receive Date: 20240718
  Receipt Date: 20240718
  Transmission Date: 20241017
  Serious: No
  Sender: ACCORD
  Company Number: US-Accord-419196

PATIENT
  Sex: Female

DRUGS (15)
  1. LETROZOLE [Suspect]
     Active Substance: LETROZOLE
     Indication: Breast cancer
     Dosage: ONE TABLET BY MOUTH AROUND DINNERTIME
     Route: 048
     Dates: start: 2023
  2. DIOVAN [Concomitant]
     Active Substance: VALSARTAN
     Dosage: 320 MG; HALF TABLET (160 MG) BY MOUTH THREE TIMES DAILY
     Route: 048
  3. METOPROLOL TARTRATE [Concomitant]
     Active Substance: METOPROLOL TARTRATE
     Indication: Atrial fibrillation
     Dosage: 25 MG; ONE TABLET BY MOUTH TWICE DAILY
     Route: 048
  4. ATORVASTATIN [Concomitant]
     Active Substance: ATORVASTATIN
     Dosage: 10 MG; ONE TABLET BY MOUTH IN THE EVENING
     Route: 048
  5. ASPIRIN [Concomitant]
     Active Substance: ASPIRIN
     Dosage: 81MG; ONE TABLET BY MOUTH DAILY
     Route: 048
  6. POTASSIUM [Concomitant]
     Active Substance: POTASSIUM
     Dosage: 20 MEQ; ONE TABLET BY MOUTH TWICE WEEKLY (SOMETIMES DIDN^T TAKE SECOND TABLET)
     Route: 048
  7. ZINC [Concomitant]
     Active Substance: ZINC
     Dosage: PRN; 220 (STRENGTH UNKNOWN); ONE TABLET BY MOUTH DAILY
     Route: 048
  8. OMEPRAZOLE [Concomitant]
     Active Substance: OMEPRAZOLE
     Dosage: PRN; 20 MG; ONE CAPSULE BY MOUTH HALF HOUR BEFORE BREAKFAST AS NEEDED
     Route: 048
  9. TYLENOL [Concomitant]
     Active Substance: ACETAMINOPHEN
     Dosage: 325 MG; ONE FAST RELEASE CAPSULE BY MOUTH AS NEEDED USUALLY BEFORE BED
     Route: 048
  10. MINERALS\VITAMINS [Concomitant]
     Active Substance: MINERALS\VITAMINS
     Dosage: ONE TABLET BY MOUTH DAILY
     Route: 048
  11. HYDROCHLOROTHIAZIDE [Concomitant]
     Active Substance: HYDROCHLOROTHIAZIDE
     Dosage: 25 MG; ONE TABLET BY MOUTH DAILY AS NEEDED
     Route: 048
  12. LORAZEPAM [Concomitant]
     Active Substance: LORAZEPAM
     Dosage: 0.25 MG; HALF TABLET BY MOUTH NIGHTLY
     Route: 048
  13. ZOFRAN [Concomitant]
     Active Substance: ONDANSETRON HYDROCHLORIDE
     Dosage: 4 MG; ONE TABLET BY MOUTH AS NEEDED
     Route: 048
  14. VITAMIN D [Concomitant]
     Active Substance: VITAMIN D NOS
     Dosage: 1000 UNITS; ONE GEL OR GUMMY ONCE DAILY
  15. LETROZOLE [Suspect]
     Active Substance: LETROZOLE
     Indication: Breast cancer
     Route: 065

REACTIONS (3)
  - Nausea [Not Recovered/Not Resolved]
  - Dizziness [Unknown]
  - Morning sickness [Unknown]
